FAERS Safety Report 9776154 (Version 1)
Quarter: 2013Q4

REPORT INFORMATION
  Report Type: Spontaneous
  Country: IT (occurrence: IT)
  Receive Date: 20131220
  Receipt Date: 20131220
  Transmission Date: 20140711
  Serious: Yes (Hospitalization)
  Sender: FDA-Public Use
  Company Number: IT-MYLANLABS-2013S1027831

PATIENT
  Age: 76 Year
  Sex: Female

DRUGS (10)
  1. DRONEDARONE [Suspect]
     Dosage: 800 MG/DAY
     Route: 065
  2. FENOFIBRATE [Suspect]
     Dosage: 200 MG/DAY
     Route: 065
  3. ATENOLOL [Concomitant]
     Route: 065
  4. DIGOXIN [Concomitant]
     Route: 065
  5. ALISKIREN [Concomitant]
     Route: 065
  6. SIL-NORBORAL                       /01503701/ [Concomitant]
     Route: 065
  7. ENOXAPARIN SODIUM [Concomitant]
     Route: 065
  8. FUROSEMIDE [Concomitant]
     Route: 065
  9. OSYROL-LASIX [Concomitant]
     Route: 065
  10. LEVOTHYROXINE SODIUM [Concomitant]
     Route: 065

REACTIONS (1)
  - Renal failure [Recovered/Resolved]
